FAERS Safety Report 5745969-8 (Version None)
Quarter: 2008Q2

REPORT INFORMATION
  Report Type: 
  Country: None (occurrence: None)
  Receive Date: 20080520
  Receipt Date: 20080512
  Transmission Date: 20081010
  Serious: Yes (Hospitalization)
  Sender: FDA-Public Use
  Company Number: 163-20785-08050598

PATIENT
  Age: 67 Year
  Sex: Male
  Weight: 94.8 kg

DRUGS (13)
  1. THALOMID [Suspect]
     Indication: MULTIPLE MYELOMA
     Dosage: 1 IN 2 D, ORAL
     Route: 048
     Dates: start: 20060503, end: 20080404
  2. DEXAMETHASONE [Suspect]
     Indication: MULTIPLE MYELOMA
     Dosage: 40 MG-12 MG, DAY 1-4 AND 8-12 Q 4 WEEKS, ORAL; 40 MG, 20MG, DAYS 1-4 ADN 8-11, ORAL
     Route: 048
     Dates: start: 20060503, end: 20070101
  3. DEXAMETHASONE [Suspect]
     Indication: MULTIPLE MYELOMA
     Dosage: 40 MG-12 MG, DAY 1-4 AND 8-12 Q 4 WEEKS, ORAL; 40 MG, 20MG, DAYS 1-4 ADN 8-11, ORAL
     Route: 048
     Dates: start: 20060503, end: 20080404
  4. VELCADE [Suspect]
     Indication: MULTIPLE MYELOMA
     Dosage: 1 MG/SQM-2.0 MG, DAYS 1,4,8 AND 11 Q 28 DAYS, INTRAVENOUS
     Route: 042
     Dates: start: 20060503, end: 20080404
  5. LEVOTHYROXINE SODIUM (LEVOTHYROXINE SODIUM) (TABLETS) [Concomitant]
  6. VYTORIN (INEGY)(TABLETS) [Concomitant]
  7. ACYCLOVIR [Concomitant]
  8. ASPIRIN [Concomitant]
  9. GLIPIZIDE [Concomitant]
  10. LYRICA [Concomitant]
  11. METFORMIN HCL [Concomitant]
  12. MULTIVITAMINS (MULTIVITAMINS) (TABLETS) [Concomitant]
  13. TOPROL-XL [Concomitant]

REACTIONS (19)
  - ABDOMINAL ABSCESS [None]
  - BLOOD CULTURE POSITIVE [None]
  - BODY TEMPERATURE INCREASED [None]
  - DIVERTICULITIS [None]
  - DYSPHAGIA [None]
  - DYSPNOEA [None]
  - ENTEROCOCCAL INFECTION [None]
  - FUNGAL INFECTION [None]
  - HYPOTENSION [None]
  - ISCHAEMIA [None]
  - LARGE INTESTINE PERFORATION [None]
  - NAUSEA [None]
  - PSEUDOMONAS INFECTION [None]
  - PULMONARY EMBOLISM [None]
  - SEPSIS [None]
  - SEROMA [None]
  - URINE OUTPUT DECREASED [None]
  - VOMITING [None]
  - WOUND INFECTION [None]
